FAERS Safety Report 17313600 (Version 1)
Quarter: 2020Q1

REPORT INFORMATION
  Report Type: Spontaneous
  Country: US (occurrence: US)
  Receive Date: 20200124
  Receipt Date: 20200124
  Transmission Date: 20200409
  Serious: Yes (Hospitalization)
  Sender: FDA-Public Use
  Company Number: US-EMMAUS MEDICAL, INC.-EMM201911-000319

PATIENT
  Sex: Male

DRUGS (4)
  1. ENDARI [Suspect]
     Active Substance: GLUTAMINE
     Indication: SICKLE CELL DISEASE
     Dosage: TWO ENVELOPES IN MORNING AND TWO ENVELOPES IN EVENING
     Route: 048
     Dates: start: 20180302
  2. PENICILLIN [Concomitant]
     Active Substance: PENICILLIN
     Indication: INFECTION PROPHYLAXIS
     Dates: start: 2005
  3. HYDROXYUREA. [Concomitant]
     Active Substance: HYDROXYUREA
  4. HYDROXYUREA. [Concomitant]
     Active Substance: HYDROXYUREA
     Indication: SICKLE CELL DISEASE
     Dates: start: 2006

REACTIONS (2)
  - Product dose omission [Unknown]
  - Sickle cell anaemia with crisis [Unknown]
